FAERS Safety Report 21323231 (Version 1)
Quarter: 2022Q3

REPORT INFORMATION
  Report Type: Spontaneous
  Country: US (occurrence: US)
  Receive Date: 20220912
  Receipt Date: 20220912
  Transmission Date: 20221026
  Serious: No
  Sender: FDA-Public Use
  Company Number: US-MYOVANT SCIENCES GMBH-2022MYSCI0600577

PATIENT
  Sex: Male

DRUGS (4)
  1. ORGOVYX [Suspect]
     Active Substance: RELUGOLIX
     Indication: Prostate cancer
     Dosage: 360 MILLIGRAM, ONE TIME DOSE
     Route: 048
     Dates: start: 20220608, end: 20220608
  2. ORGOVYX [Suspect]
     Active Substance: RELUGOLIX
     Dosage: 120 MILLIGRAM, QD
     Route: 048
     Dates: start: 20220609
  3. ORGOVYX [Suspect]
     Active Substance: RELUGOLIX
     Dosage: UNK
     Route: 065
  4. ABIRATERONE [Suspect]
     Active Substance: ABIRATERONE
     Indication: Prostate cancer
     Dosage: 1000 MILLIGRAM, QD
     Route: 065
     Dates: start: 20220608

REACTIONS (5)
  - Weight decreased [Not Recovered/Not Resolved]
  - Diarrhoea [Not Recovered/Not Resolved]
  - Fatigue [Unknown]
  - Hot flush [Unknown]
  - Nocturia [Unknown]
